FAERS Safety Report 8543120-2 (Version None)
Quarter: 2012Q3

REPORT INFORMATION
  Report Type: 
  Country: None (occurrence: None)
  Receive Date: 20120727
  Receipt Date: 20120130
  Transmission Date: 20120928
  Serious: No
  Sender: FDA-Public Use
  Company Number: US-MYLANLABS-2012S1000621

PATIENT
  Age: 51 Year
  Sex: Female
  Weight: 87.54 kg

DRUGS (4)
  1. LEVOTHYROXINE SODIUM [Suspect]
     Indication: HYPOTHYROIDISM
     Route: 048
     Dates: start: 20100701
  2. XANAX [Concomitant]
     Indication: ANXIETY
     Dosage: SELDOM TAKES
  3. ZANTAC [Concomitant]
     Indication: GASTROOESOPHAGEAL REFLUX DISEASE
  4. TYLENOL [Concomitant]

REACTIONS (6)
  - BLOOD MAGNESIUM INCREASED [None]
  - BLOOD IRON INCREASED [None]
  - BLOOD PHOSPHORUS DECREASED [None]
  - BLOOD POTASSIUM DECREASED [None]
  - BLOOD ALUMINIUM INCREASED [None]
  - BLOOD CALCIUM DECREASED [None]
